FAERS Safety Report 4438787-4 (Version None)
Quarter: 2004Q3

REPORT INFORMATION
  Report Type: 
  Country: None (occurrence: None)
  Receive Date: 20040901
  Receipt Date: 20040823
  Transmission Date: 20050211
  Serious: Yes (Hospitalization, Other)
  Sender: FDA-Public Use
  Company Number: US-JNJFOC-20040605791

PATIENT
  Sex: Female
  Weight: 86.18 kg

DRUGS (6)
  1. REMICADE [Suspect]
     Route: 042
  2. AZATHIOPRINE [Suspect]
     Route: 049
  3. UNITHROID [Concomitant]
     Route: 049
  4. UNITHROID [Concomitant]
     Indication: HYPOTHYROIDISM
     Route: 049
  5. PROZAC [Concomitant]
     Indication: DEPRESSION
     Route: 049
  6. MOSIC [Concomitant]
     Route: 049

REACTIONS (5)
  - CELLULITIS [None]
  - CHEST WALL ABSCESS [None]
  - DIVERTICULITIS [None]
  - PERITONITIS [None]
  - STAPHYLOCOCCAL INFECTION [None]
